FAERS Safety Report 18848892 (Version 1)
Quarter: 2021Q1

REPORT INFORMATION
  Report Type: Spontaneous
  Country: US (occurrence: US)
  Receive Date: 20210204
  Receipt Date: 20210204
  Transmission Date: 20210419
  Serious: Yes (Hospitalization)
  Sender: FDA-Public Use
  Company Number: US-TEVA-2021-US-1874726

PATIENT
  Age: 79 Year
  Sex: Female

DRUGS (6)
  1. PREDNISONE. [Suspect]
     Active Substance: PREDNISONE
     Indication: RHEUMATOID ARTHRITIS
     Dosage: 3 MILLIGRAM DAILY;
     Route: 065
  2. IOHEXOL [Concomitant]
     Active Substance: IOHEXOL
     Indication: SCAN WITH CONTRAST
     Route: 008
  3. METHYLPREDNISOLONE. [Suspect]
     Active Substance: METHYLPREDNISOLONE
     Indication: RADICULOPATHY
     Dosage: SHE RECEIVED A LEFT L5? S1 PARAMEDIAN EPIDURAL STEROID INJECTION WITH 80 MG OF METHYLPREDNISOLONE...
     Route: 008
  4. METHOTREXATE. [Suspect]
     Active Substance: METHOTREXATE
     Indication: RHEUMATOID ARTHRITIS
     Route: 065
  5. ADALIMUMAB [Suspect]
     Active Substance: ADALIMUMAB
     Indication: RHEUMATOID ARTHRITIS
     Dosage: BIMONTHLY
     Route: 065
  6. NORMAL SALINE [Concomitant]
     Active Substance: SODIUM CHLORIDE
     Indication: PRODUCT USED FOR UNKNOWN INDICATION
     Dosage: 1ML OF SODIUM CHLORIDE WAS INJECTED BEFORE THE NEEDLE WAS PULLED OUT
     Route: 008

REACTIONS (3)
  - Paradoxical drug reaction [Recovering/Resolving]
  - Spinal disorder [Recovering/Resolving]
  - Inflammation [Recovering/Resolving]
